FAERS Safety Report 4981547-6 (Version None)
Quarter: 2006Q2

REPORT INFORMATION
  Report Type: 
  Country: None (occurrence: None)
  Receive Date: 20060419
  Receipt Date: 20060403
  Transmission Date: 20061013
  Serious: Yes (Hospitalization)
  Sender: FDA-Public Use
  Company Number: US200604000461

PATIENT
  Sex: Male

DRUGS (3)
  1. HUMALOG PEN [Suspect]
     Indication: DIABETES MELLITUS
     Dosage: AS NEEDED
  2. HUMALOG PEN [Concomitant]
  3. LANTUS [Concomitant]

REACTIONS (1)
  - PNEUMONIA [None]
